FAERS Safety Report 15809378 (Version 2)
Quarter: 2019Q1

REPORT INFORMATION
  Report Type: Spontaneous
  Country: US (occurrence: US)
  Receive Date: 20190110
  Receipt Date: 20190212
  Transmission Date: 20190417
  Serious: No
  Sender: FDA-Public Use
  Company Number: US-ASTRAZENECA-2018SF66784

PATIENT
  Sex: Female

DRUGS (1)
  1. BEVESPI AEROSPHERE [Suspect]
     Active Substance: FORMOTEROL FUMARATE\GLYCOPYRROLATE
     Dosage: 9/4.8 MCG, TWO INHALATIONS TWICE A DAY
     Route: 055
     Dates: start: 201703

REACTIONS (6)
  - Anger [Not Recovered/Not Resolved]
  - Device issue [Unknown]
  - Panic attack [Not Recovered/Not Resolved]
  - Off label use [Not Recovered/Not Resolved]
  - Device malfunction [Unknown]
  - Intentional product misuse [Not Recovered/Not Resolved]
